FAERS Safety Report 5980133-9 (Version None)
Quarter: 2008Q4

REPORT INFORMATION
  Report Type: 
  Country: None (occurrence: None)
  Receive Date: 20081205
  Receipt Date: 20081128
  Transmission Date: 20090506
  Serious: Yes (Hospitalization)
  Sender: FDA-Public Use
  Company Number: DE-AMGEN-US299996

PATIENT
  Age: 55 Year
  Sex: Female

DRUGS (7)
  1. ENBREL [Suspect]
     Indication: RHEUMATOID ARTHRITIS
     Route: 058
     Dates: start: 20070101
  2. CORTISONE ACETATE TAB [Suspect]
     Route: 048
     Dates: end: 20080101
  3. CORTISONE ACETATE TAB [Suspect]
     Route: 048
     Dates: start: 20080101, end: 20080101
  4. CORTISONE ACETATE TAB [Suspect]
     Dosage: UNKNOWN
     Route: 048
     Dates: start: 20080101
  5. CORTISONE ACETATE TAB [Suspect]
     Route: 048
     Dates: start: 20080101
  6. ANALGESICS [Suspect]
     Dosage: UNKNOWN
     Route: 065
  7. LANTAREL [Concomitant]
     Route: 058
     Dates: start: 20080101

REACTIONS (13)
  - ABDOMINAL PAIN [None]
  - BODY TEMPERATURE INCREASED [None]
  - CONDITION AGGRAVATED [None]
  - DIARRHOEA [None]
  - DRUG INEFFECTIVE [None]
  - FATIGUE [None]
  - HYPERHIDROSIS [None]
  - JOINT ARTHROPLASTY [None]
  - OEDEMA PERIPHERAL [None]
  - PARKINSON'S DISEASE [None]
  - RHEUMATOID ARTHRITIS [None]
  - TREMOR [None]
  - WEIGHT ABNORMAL [None]
